FAERS Safety Report 19501970 (Version 1)
Quarter: 2021Q3

REPORT INFORMATION
  Report Type: Spontaneous
  Country: US (occurrence: US)
  Receive Date: 20210706
  Receipt Date: 20210706
  Transmission Date: 20211014
  Serious: No
  Sender: FDA-Public Use
  Company Number: None

PATIENT
  Sex: Female

DRUGS (10)
  1. ONDANSETRON [Concomitant]
     Active Substance: ONDANSETRON
  2. SUCRALFATE. [Concomitant]
     Active Substance: SUCRALFATE
  3. OMEPRAZOLE. [Concomitant]
     Active Substance: OMEPRAZOLE
  4. VALACYCLOVIR [Concomitant]
     Active Substance: VALACYCLOVIR HYDROCHLORIDE
  5. STELARA [Suspect]
     Active Substance: USTEKINUMAB
     Indication: INTESTINAL OBSTRUCTION
     Dosage: ?          OTHER DOSE:1 SYR;OTHER FREQUENCY:Q8WK;?
     Route: 058
     Dates: start: 20210514
  6. TOBRAMYCIN. [Concomitant]
     Active Substance: TOBRAMYCIN
  7. PREDNISONE. [Concomitant]
     Active Substance: PREDNISONE
  8. LEVOTHYROXIN [Concomitant]
     Active Substance: LEVOTHYROXINE
  9. FOLIC ACID. [Concomitant]
     Active Substance: FOLIC ACID
  10. STELARA [Suspect]
     Active Substance: USTEKINUMAB
     Indication: CROHN^S DISEASE
     Dosage: ?          OTHER DOSE:1 SYR;OTHER FREQUENCY:Q8WK;?
     Route: 058
     Dates: start: 20210514

REACTIONS (3)
  - Injection related reaction [None]
  - Headache [None]
  - Gallbladder operation [None]
